FAERS Safety Report 6892222-5 (Version None)
Quarter: 2010Q3

REPORT INFORMATION
  Report Type: 
  Country: None (occurrence: None)
  Receive Date: 20100731
  Receipt Date: 20080305
  Transmission Date: 20110219
  Serious: No
  Sender: FDA-Public Use
  Company Number: US-PFIZER INC-2008021804

PATIENT
  Sex: Female
  Weight: 65 kg

DRUGS (2)
  1. NORVASC [Suspect]
     Indication: HYPERTENSION
     Route: 048
     Dates: start: 20080223
  2. LIPITOR [Concomitant]
     Route: 048
     Dates: start: 19980101

REACTIONS (3)
  - HEADACHE [None]
  - MALAISE [None]
  - OROPHARYNGEAL PAIN [None]
